FAERS Safety Report 22303393 (Version 1)
Quarter: 2023Q2

REPORT INFORMATION
  Report Type: Spontaneous
  Country: US (occurrence: US)
  Receive Date: 20230510
  Receipt Date: 20230510
  Transmission Date: 20230722
  Serious: No
  Sender: FDA-Public Use
  Company Number: US-BAYER-2023A060816

PATIENT
  Age: 73 Year
  Sex: Female

DRUGS (2)
  1. MIRALAX [Suspect]
     Active Substance: POLYETHYLENE GLYCOL 3350
     Indication: Colonoscopy
     Dosage: 7 OZ DOSE
     Route: 048
     Dates: start: 20230430, end: 20230430
  2. DULCOLAX (BISACODYL) [Suspect]
     Active Substance: BISACODYL
     Dosage: 4 DF

REACTIONS (2)
  - Off label use [Recovered/Resolved]
  - Incorrect dose administered [Recovered/Resolved]

NARRATIVE: CASE EVENT DATE: 20230430
